FAERS Safety Report 14974918 (Version 1)
Quarter: 2018Q2

REPORT INFORMATION
  Report Type: Spontaneous
  Country: FR (occurrence: FR)
  Receive Date: 20180605
  Receipt Date: 20180605
  Transmission Date: 20180711
  Serious: Yes (Congenital Anomaly)
  Sender: FDA-Public Use
  Company Number: FR-JNJFOC-20180540310

PATIENT
  Sex: Female
  Weight: 3.09 kg

DRUGS (4)
  1. EPITOMAX [Suspect]
     Active Substance: TOPIRAMATE
     Indication: EPILEPSY
     Dosage: MOTHER DOSING
     Route: 064
     Dates: start: 2012, end: 2013
  2. VIMPAT [Suspect]
     Active Substance: LACOSAMIDE
     Indication: EPILEPSY
     Dosage: MOTHER DOSING
     Route: 064
     Dates: start: 2012, end: 2013
  3. DEPAKINE [Suspect]
     Active Substance: VALPROATE SODIUM
     Indication: PRODUCT USED FOR UNKNOWN INDICATION
     Dosage: MOTHER DOSING
     Route: 064
     Dates: start: 2012, end: 2012
  4. URBANYL [Suspect]
     Active Substance: CLOBAZAM
     Indication: EPILEPSY
     Dosage: MOTHER DOSING
     Route: 064
     Dates: start: 2012, end: 2013

REACTIONS (6)
  - Foetal exposure during pregnancy [Recovered/Resolved]
  - Congenital floppy infant [Not Recovered/Not Resolved]
  - Dysmorphism [Not Recovered/Not Resolved]
  - Congenital tracheomalacia [Not Recovered/Not Resolved]
  - Ventricular septal defect [Recovered/Resolved with Sequelae]
  - Congenital central nervous system anomaly [Not Recovered/Not Resolved]

NARRATIVE: CASE EVENT DATE: 2013
